FAERS Safety Report 9337944 (Version 1)
Quarter: 2013Q2

REPORT INFORMATION
  Report Type: Spontaneous
  Country: US (occurrence: US)
  Receive Date: 20130609
  Receipt Date: 20130609
  Transmission Date: 20140414
  Serious: No
  Sender: FDA-Public Use
  Company Number: US-009507513-1306USA002607

PATIENT
  Age: 80 Year
  Sex: Female

DRUGS (4)
  1. SAPHRIS [Suspect]
     Indication: BIPOLAR I DISORDER
     Dosage: 5MG TWICE DAILY
     Route: 060
  2. SAPHRIS [Suspect]
     Dosage: 2.5 MG, BID
     Route: 060
  3. DEPAKOTE [Concomitant]
  4. ZOLOFT [Concomitant]

REACTIONS (2)
  - Somnolence [Recovered/Resolved]
  - Underdose [Unknown]
